FAERS Safety Report 6586373-2 (Version None)
Quarter: 2010Q1

REPORT INFORMATION
  Report Type: 
  Country: None (occurrence: None)
  Receive Date: 20100217
  Receipt Date: 20090312
  Transmission Date: 20100710
  Serious: No
  Sender: FDA-Public Use
  Company Number: US-ALLERGAN-0901740US

PATIENT
  Age: 43 Year
  Sex: Female

DRUGS (2)
  1. BOTOX COSMETIC [Suspect]
     Indication: SKIN WRINKLING
     Dosage: 39 UNITS, SINGLE
     Route: 030
     Dates: start: 20080801, end: 20080801
  2. JUVEDERM [Suspect]
     Indication: SKIN WRINKLING

REACTIONS (4)
  - BLEPHAROSPASM [None]
  - INJECTION SITE ERYTHEMA [None]
  - INJECTION SITE PAIN [None]
  - ROSACEA [None]
